FAERS Safety Report 17929306 (Version 1)
Quarter: 2020Q2

REPORT INFORMATION
  Report Type: Spontaneous
  Country: FR (occurrence: FR)
  Receive Date: 20200623
  Receipt Date: 20200623
  Transmission Date: 20200714
  Serious: Yes (Other)
  Sender: FDA-Public Use
  Company Number: NVSC2020FR173175

PATIENT
  Age: 66 Year
  Sex: Male

DRUGS (4)
  1. AZITHROMYCINE SANDOZ 250 MG FILMOMHULDE TABLETTEN [Interacting]
     Active Substance: AZITHROMYCIN
     Dosage: 250 MG, QD
     Route: 050
     Dates: start: 20200323, end: 20200324
  2. PLAQUENIL [Interacting]
     Active Substance: HYDROXYCHLOROQUINE SULFATE
     Dosage: 600 MG, QD
     Route: 050
     Dates: start: 20200322, end: 20200329
  3. AZITHROMYCINE SANDOZ 250 MG FILMOMHULDE TABLETTEN [Suspect]
     Active Substance: AZITHROMYCIN
     Indication: CORONAVIRUS INFECTION
     Dosage: 500 MG(J1, PUIS 250 MG/JOUR)
     Route: 048
     Dates: start: 20200320, end: 20200322
  4. PLAQUENIL [Interacting]
     Active Substance: HYDROXYCHLOROQUINE SULFATE
     Indication: CORONAVIRUS INFECTION
     Dosage: 600 MG, QD
     Route: 065
     Dates: start: 20200320, end: 20200322

REACTIONS (1)
  - Electrocardiogram QT prolonged [Recovering/Resolving]

NARRATIVE: CASE EVENT DATE: 20200325
